FAERS Safety Report 12728906 (Version 2)
Quarter: 2016Q3

REPORT INFORMATION
  Report Type: Report from Study
  Country: JP (occurrence: JP)
  Receive Date: 20160909
  Receipt Date: 20160913
  Transmission Date: 20161109
  Serious: Yes (Other)
  Sender: FDA-Public Use
  Company Number: JP-PURDUE PHARMA-GBR-2013-0037978

PATIENT
  Age: 51 Year
  Sex: Male
  Weight: 104 kg

DRUGS (8)
  1. NAUZELIN [Concomitant]
     Active Substance: DOMPERIDONE
     Indication: NAUSEA
     Dosage: 30 MG, DAILY
     Route: 048
     Dates: start: 20120428
  2. STOMIN A [Concomitant]
     Active Substance: NIACINAMIDE\PAPAVERINE HYDROCHLORIDE
     Indication: SPINAL LIGAMENT OSSIFICATION
     Dosage: UNK
     Route: 048
     Dates: start: 20110304
  3. TRICOR                             /00499301/ [Concomitant]
     Indication: HYPERLIPIDAEMIA
     Dosage: 160 MG, DAILY
     Route: 048
     Dates: start: 20120113
  4. ADALAT [Concomitant]
     Active Substance: NIFEDIPINE
     Indication: HYPERTENSION
     Dosage: 40 MG, DAILY
     Route: 048
     Dates: start: 20060423
  5. BTDS 5 MG [Suspect]
     Active Substance: BUPRENORPHINE
     Indication: ANALGESIC THERAPY
     Dosage: 10 MCG, Q1H
     Route: 062
     Dates: start: 20120508, end: 20120831
  6. NAUZELIN [Concomitant]
     Active Substance: DOMPERIDONE
     Indication: PROPHYLAXIS
  7. BTDS 5 MG [Suspect]
     Active Substance: BUPRENORPHINE
     Dosage: 5 MCG, Q1H
     Route: 062
     Dates: start: 20120428, end: 20120508
  8. NEO VITACAIN                       /01127401/ [Concomitant]
     Indication: SPINAL LIGAMENT OSSIFICATION
     Dosage: 5 ML, BIW
     Route: 042
     Dates: start: 20051227

REACTIONS (5)
  - Dermatitis contact [Recovering/Resolving]
  - Somnolence [Recovered/Resolved]
  - Hepatic function abnormal [Recovered/Resolved]
  - Cholelithiasis [Recovered/Resolved]
  - Nausea [Recovered/Resolved]

NARRATIVE: CASE EVENT DATE: 20120502
